FAERS Safety Report 9262454 (Version 1)
Quarter: 2013Q2

REPORT INFORMATION
  Report Type: Spontaneous
  Country: US (occurrence: None)
  Receive Date: 20130426
  Receipt Date: 20130426
  Transmission Date: 20140414
  Serious: No
  Sender: FDA-Public Use
  Company Number: None

PATIENT
  Sex: Female

DRUGS (1)
  1. ONFI [Suspect]
     Indication: EPILEPSY
     Route: 048
     Dates: start: 201211

REACTIONS (2)
  - Status epilepticus [None]
  - Therapy cessation [None]
